FAERS Safety Report 26023005 (Version 1)
Quarter: 2025Q4

REPORT INFORMATION
  Report Type: Spontaneous
  Country: US (occurrence: US)
  Receive Date: 20251110
  Receipt Date: 20251110
  Transmission Date: 20260118
  Serious: No
  Sender: APELLIS PHARMACEUTICALS
  Company Number: US-APELLIS-2025-APL-0002117

PATIENT

DRUGS (1)
  1. EMPAVELI [Suspect]
     Active Substance: PEGCETACOPLAN
     Indication: Paroxysmal nocturnal haemoglobinuria
     Dosage: DOSE: 1080 MG?FREQUENCY: TWICE WEEKLY?ROUTE: SUBCUTANEOUS
     Route: 058
     Dates: start: 20210816

REACTIONS (1)
  - Nasopharyngitis [Recovered/Resolved]
